FAERS Safety Report 11679628 (Version 1)
Quarter: 2015Q4

REPORT INFORMATION
  Report Type: Spontaneous
  Country: VE (occurrence: VE)
  Receive Date: 20151028
  Receipt Date: 20151028
  Transmission Date: 20160304
  Serious: Yes (Other)
  Sender: FDA-Public Use
  Company Number: PHHY2015VE139345

PATIENT
  Sex: Male

DRUGS (2)
  1. TEGRETOL [Suspect]
     Active Substance: CARBAMAZEPINE
     Indication: AFFECTIVE DISORDER
     Dosage: 800 MG, QD
     Route: 048
     Dates: start: 2011
  2. LEPONEX [Suspect]
     Active Substance: CLOZAPINE
     Indication: SCHIZOAFFECTIVE DISORDER
     Dosage: 400 MG, QD
     Route: 048
     Dates: start: 2011

REACTIONS (4)
  - Depression [Unknown]
  - Schizoaffective disorder [Unknown]
  - Hallucination [Unknown]
  - Aggression [Unknown]
